FAERS Safety Report 12625722 (Version 1)
Quarter: 2016Q3

REPORT INFORMATION
  Report Type: Spontaneous
  Country: US (occurrence: None)
  Receive Date: 20160804
  Receipt Date: 20160804
  Transmission Date: 20161109
  Serious: Yes (Life-Threatening, Hospitalization)
  Sender: FDA-Public Use
  Company Number: None

PATIENT
  Age: 55 Year
  Sex: Female
  Weight: 116.3 kg

DRUGS (20)
  1. NYSTATIN. [Concomitant]
     Active Substance: NYSTATIN
  2. TORSEMIDE. [Concomitant]
     Active Substance: TORSEMIDE
  3. BUSPIRONE [Concomitant]
     Active Substance: BUSPIRONE HYDROCHLORIDE
  4. CLOPIDOGREL [Concomitant]
     Active Substance: CLOPIDOGREL BISULFATE
  5. OLANZAPINE. [Concomitant]
     Active Substance: OLANZAPINE
  6. ASPIRIN. [Concomitant]
     Active Substance: ASPIRIN
  7. CRANBERRY. [Concomitant]
     Active Substance: CRANBERRY
  8. CALCIUM VITAMIN D [Concomitant]
     Active Substance: CALCIUM\VITAMIN D
  9. DOXAZOSIN [Concomitant]
     Active Substance: DOXAZOSIN\DOXAZOSIN MESYLATE
  10. INSULIN GLARGINE [Concomitant]
     Active Substance: INSULIN GLARGINE
  11. DUONEB [Concomitant]
     Active Substance: ALBUTEROL SULFATE\IPRATROPIUM BROMIDE
  12. SPIRIVA [Concomitant]
     Active Substance: TIOTROPIUM BROMIDE MONOHYDRATE
  13. BUDESONIDE FORMOTEROL [Concomitant]
     Active Substance: BUDESONIDE
  14. BUPROPION SR [Concomitant]
     Active Substance: BUPROPION
  15. CITALOPRAM [Concomitant]
     Active Substance: CITALOPRAM HYDROBROMIDE
  16. INSULIN LISPRO [Concomitant]
     Active Substance: INSULIN LISPRO
  17. ENTRESTO [Suspect]
     Active Substance: SACUBITRIL\VALSARTAN
     Indication: CARDIAC FAILURE
     Dates: start: 20160227, end: 20160423
  18. ATORVASTATIN [Concomitant]
     Active Substance: ATORVASTATIN
  19. FERROUS SULFATE. [Concomitant]
     Active Substance: FERROUS SULFATE
  20. HYDROCODONE BITARTRATE AND ACETAMINOPHEN [Concomitant]
     Active Substance: ACETAMINOPHEN\HYDROCODONE BITARTRATE

REACTIONS (2)
  - Renal injury [None]
  - Blood creatinine increased [None]

NARRATIVE: CASE EVENT DATE: 20160423
